FAERS Safety Report 9518796 (Version 1)
Quarter: 2013Q3

REPORT INFORMATION
  Report Type: Spontaneous
  Country: US (occurrence: US)
  Receive Date: 20130912
  Receipt Date: 20130912
  Transmission Date: 20140515
  Serious: Yes (Hospitalization)
  Sender: FDA-Public Use
  Company Number: US-B.I. PHARMACEUTICALS,INC./RIDGEFIELD-2013-BI-27925BP

PATIENT
  Age: 74 Year
  Sex: Male
  Weight: 74 kg

DRUGS (23)
  1. SPIRIVA [Suspect]
     Indication: CHRONIC OBSTRUCTIVE PULMONARY DISEASE
     Dosage: 18 MCG
     Route: 055
     Dates: start: 2004
  2. ASPIRIN [Concomitant]
     Dosage: 81 MG
     Route: 048
     Dates: start: 2003
  3. CARVEDILOL [Concomitant]
     Indication: HYPERTENSION
     Dosage: 25 MG
     Route: 048
     Dates: start: 201308
  4. CLONIDINE [Concomitant]
     Indication: HYPERTENSION
     Dosage: 0.1 MG
     Route: 048
     Dates: start: 2003
  5. LISINOPRIL [Concomitant]
     Indication: HYPERTENSION
     Dosage: 20 MG
     Route: 048
     Dates: start: 2003
  6. DIGOXIN [Concomitant]
     Indication: ATRIAL FIBRILLATION
     Dosage: 250 MCG
     Route: 048
     Dates: start: 201308
  7. LEXAPRO [Concomitant]
     Indication: ANXIETY
     Dosage: 10 MG
     Route: 048
     Dates: start: 201308
  8. ADVAIR [Concomitant]
     Indication: CHRONIC OBSTRUCTIVE PULMONARY DISEASE
     Dosage: DOSE PER APPLICATION: 250 MCG / 50 MCG; DAILY DOSE: 500 MCG / 100 MCG
     Route: 055
     Dates: start: 2003
  9. LASIX [Concomitant]
     Indication: OEDEMA PERIPHERAL
     Dosage: 20 MG
     Route: 048
     Dates: start: 2010
  10. LASIX [Concomitant]
     Indication: OEDEMA PERIPHERAL
  11. GABAPENTIN [Concomitant]
     Indication: NEURALGIA
     Dosage: 300 MG
     Route: 048
     Dates: start: 201305
  12. SIMVASTATIN [Concomitant]
     Indication: HYPERLIPIDAEMIA
     Dosage: 20 MG
     Route: 048
     Dates: start: 2003
  13. TRAZODONE [Concomitant]
     Indication: DEPRESSION
     Dosage: 50 MG
     Route: 048
     Dates: start: 201305
  14. XANAX [Concomitant]
     Indication: ANXIETY
     Route: 048
     Dates: start: 201308
  15. XOPENEX [Concomitant]
     Indication: CHRONIC OBSTRUCTIVE PULMONARY DISEASE
     Route: 055
     Dates: start: 2008
  16. XOPENEX [Concomitant]
     Indication: WHEEZING
  17. NITROGLYCERIN [Concomitant]
     Indication: CHEST PAIN
     Dates: start: 2007
  18. TRAMADOL [Concomitant]
     Indication: ARTHRALGIA
     Dosage: 50 MG
     Route: 048
     Dates: start: 201305
  19. ZOLPIDEM [Concomitant]
     Indication: INSOMNIA
     Route: 048
     Dates: start: 201308
  20. SENOKOT S [Concomitant]
     Indication: CONSTIPATION
     Dosage: (TABLET) STRENGTH: 50 MG / 8.6 MG; DAILY DOSE: 100 MG / 17.2 MG
     Route: 048
     Dates: start: 201305
  21. KLOR-CON [Concomitant]
     Indication: BLOOD POTASSIUM DECREASED
     Dosage: 40 MEQ
     Route: 048
     Dates: start: 201309
  22. MIRALAX [Concomitant]
     Indication: CONSTIPATION
     Dosage: 17 G
     Route: 048
     Dates: start: 201305
  23. COLACE [Concomitant]
     Indication: FAECES HARD
     Dosage: 200 MG
     Route: 048
     Dates: start: 201305

REACTIONS (1)
  - Cerebrovascular accident [Recovered/Resolved with Sequelae]
